FAERS Safety Report 8210972-5 (Version None)
Quarter: 2012Q1

REPORT INFORMATION
  Report Type: 
  Country: None (occurrence: None)
  Receive Date: 20120315
  Receipt Date: 20120305
  Transmission Date: 20120608
  Serious: Yes (Other)
  Sender: FDA-Public Use
  Company Number: US-JNJFOC-20111211789

PATIENT
  Sex: Female
  Weight: 77.2 kg

DRUGS (4)
  1. MULTI-VITAMINS [Concomitant]
     Route: 065
  2. REMICADE [Suspect]
     Indication: CROHN'S DISEASE
     Route: 042
     Dates: start: 20120217
  3. REMICADE [Suspect]
     Dosage: 400 MG
     Route: 042
     Dates: start: 20070301, end: 20111219
  4. IRON [Concomitant]
     Route: 065

REACTIONS (1)
  - RENAL FAILURE CHRONIC [None]
